FAERS Safety Report 19396673 (Version 2)
Quarter: 2021Q3

REPORT INFORMATION
  Report Type: Spontaneous
  Country: MX (occurrence: MX)
  Receive Date: 20210609
  Receipt Date: 20210702
  Transmission Date: 20211014
  Serious: Yes (Other)
  Sender: FDA-Public Use
  Company Number: MX-PFIZER INC-2021612882

PATIENT
  Age: 68 Year
  Sex: Female

DRUGS (1)
  1. HALCION [Suspect]
     Active Substance: TRIAZOLAM
     Dosage: UNK

REACTIONS (8)
  - Panic attack [Unknown]
  - Feeling abnormal [Unknown]
  - Feeling of despair [Unknown]
  - Poisoning [Unknown]
  - Product use issue [Unknown]
  - Drug withdrawal syndrome [Unknown]
  - Off label use [Unknown]
  - Intentional dose omission [Unknown]
